FAERS Safety Report 24997664 (Version 2)
Quarter: 2025Q1

REPORT INFORMATION
  Report Type: Report from Study
  Country: CO (occurrence: CO)
  Receive Date: 20250222
  Receipt Date: 20250312
  Transmission Date: 20250409
  Serious: Yes (Hospitalization, Other)
  Sender: ABBVIE
  Company Number: CO-ABBVIE-6139171

PATIENT
  Age: 49 Year
  Sex: Female
  Weight: 64 kg

DRUGS (1)
  1. SKYRIZI [Suspect]
     Active Substance: RISANKIZUMAB-RZAA
     Indication: Psoriasis
     Route: 058
     Dates: start: 20220125, end: 20241205

REACTIONS (10)
  - Thrombosis [Recovering/Resolving]
  - Accident [Unknown]
  - Traumatic lung injury [Recovering/Resolving]
  - Staphylococcal infection [Unknown]
  - Loss of consciousness [Unknown]
  - Gait disturbance [Unknown]
  - Rib fracture [Recovering/Resolving]
  - Hand fracture [Unknown]
  - Pneumonia [Unknown]
  - Surgery [Unknown]

NARRATIVE: CASE EVENT DATE: 20250101
